FAERS Safety Report 17247300 (Version 4)
Quarter: 2020Q1

REPORT INFORMATION
  Report Type: Spontaneous
  Country: IL (occurrence: IL)
  Receive Date: 20200108
  Receipt Date: 20200218
  Transmission Date: 20200409
  Serious: Yes (Other)
  Sender: FDA-Public Use
  Company Number: IL-SA-2020SA001190

PATIENT
  Age: 88 Year
  Sex: Male

DRUGS (1)
  1. OMNIC [Suspect]
     Active Substance: TAMSULOSIN HYDROCHLORIDE
     Indication: PROSTATOMEGALY
     Dosage: 0.4 MG, HS
     Route: 048
     Dates: start: 1974

REACTIONS (5)
  - Urinary retention [Recovered/Resolved]
  - Product counterfeit [Unknown]
  - Dysuria [Recovered/Resolved]
  - Musculoskeletal pain [Recovered/Resolved]
  - Renal pain [Recovered/Resolved]
